FAERS Safety Report 11215002 (Version 1)
Quarter: 2015Q2

REPORT INFORMATION
  Report Type: Spontaneous
  Country: GB (occurrence: GB)
  Receive Date: 20150624
  Receipt Date: 20150624
  Transmission Date: 20150821
  Serious: Yes (Hospitalization)
  Sender: FDA-Public Use
  Company Number: GB-TEVA-571844ACC

PATIENT
  Age: 83 Year
  Sex: Female
  Weight: 59.2 kg

DRUGS (13)
  1. THEOPHYLLINE [Suspect]
     Active Substance: THEOPHYLLINE ANHYDROUS
     Indication: DYSPNOEA
     Dosage: 400 MILLIGRAM DAILY;
     Route: 048
     Dates: start: 20150313, end: 20150515
  2. CARBOCISTEINE [Concomitant]
     Active Substance: CARBOCYSTEINE
  3. RIVAROXABAN [Concomitant]
     Active Substance: RIVAROXABAN
  4. SALBUTAMOL [Concomitant]
     Active Substance: ALBUTEROL
  5. BUMETANIDE. [Concomitant]
     Active Substance: BUMETANIDE
  6. FOLIC ACID. [Concomitant]
     Active Substance: FOLIC ACID
  7. AZITHROMYCIN [Suspect]
     Active Substance: AZITHROMYCIN ANHYDROUS
     Route: 048
     Dates: start: 20150501
  8. PARACETAMOL [Concomitant]
     Active Substance: ACETAMINOPHEN
  9. RANITIDINE [Concomitant]
     Active Substance: RANITIDINE\RANITIDINE HYDROCHLORIDE
  10. TIOTROPIUM BROMIDE [Concomitant]
     Active Substance: TIOTROPIUM BROMIDE
  11. DILTIAZEM [Suspect]
     Active Substance: DILTIAZEM
     Indication: TACHYCARDIA
     Dosage: 120 MILLIGRAM DAILY; MODIFIED RELEASE.
     Route: 048
     Dates: start: 20150421
  12. ADCAL-D3 [Concomitant]
     Active Substance: CALCIUM CARBONATE\CHOLECALCIFEROL
  13. SYMBICORT [Concomitant]
     Active Substance: BUDESONIDE\FORMOTEROL FUMARATE DIHYDRATE

REACTIONS (2)
  - Toxicity to various agents [Recovered/Resolved]
  - Seizure [Unknown]

NARRATIVE: CASE EVENT DATE: 20150514
